FAERS Safety Report 9798924 (Version 3)
Quarter: 2015Q3

REPORT INFORMATION
  Report Type: Spontaneous
  Country: US (occurrence: US)
  Receive Date: 20140106
  Receipt Date: 20150806
  Transmission Date: 20151125
  Serious: No
  Sender: FDA-Public Use
  Company Number: US-GILEAD-2010-0033449

PATIENT
  Age: 90 Year
  Sex: Female

DRUGS (14)
  1. LASIX [Concomitant]
     Active Substance: FUROSEMIDE
  2. TRAMADOL. [Concomitant]
     Active Substance: TRAMADOL
  3. CLONAZEPAM. [Concomitant]
     Active Substance: CLONAZEPAM
  4. COUMADIN [Concomitant]
     Active Substance: WARFARIN SODIUM
  5. ASPIRIN. [Concomitant]
     Active Substance: ASPIRIN
  6. LETAIRIS [Suspect]
     Active Substance: AMBRISENTAN
     Indication: PULMONARY ARTERIAL HYPERTENSION
     Route: 048
     Dates: start: 20090422
  7. LISINOPRIL. [Concomitant]
     Active Substance: LISINOPRIL
  8. WELCHOL [Concomitant]
     Active Substance: COLESEVELAM HYDROCHLORIDE
  9. SYNTHROID [Concomitant]
     Active Substance: LEVOTHYROXINE SODIUM
  10. CITRICAL [Concomitant]
     Active Substance: CALCIUM CITRATE
  11. BYSTOLIC [Concomitant]
     Active Substance: NEBIVOLOL HYDROCHLORIDE
  12. NEXIUM [Concomitant]
     Active Substance: ESOMEPRAZOLE MAGNESIUM
  13. POTASSIUM [Concomitant]
     Active Substance: POTASSIUM
  14. FISH OIL [Concomitant]
     Active Substance: FISH OIL

REACTIONS (1)
  - Swelling [Unknown]
